FAERS Safety Report 4616077-4 (Version None)
Quarter: 2005Q1

REPORT INFORMATION
  Report Type: 
  Country: None (occurrence: None)
  Receive Date: 20050321
  Receipt Date: 20050310
  Transmission Date: 20050727
  Serious: Yes (Other)
  Sender: FDA-Public Use
  Company Number: SP-2005-002111

PATIENT
  Age: 75 Year
  Sex: Male

DRUGS (7)
  1. OLMESARTAN MEDOXOMIL 20 [Suspect]
     Indication: HYPERTENSION
     Dosage: 20 MG QD PO
     Route: 048
     Dates: start: 20041220, end: 20050216
  2. ASPIRIN [Concomitant]
  3. CO-PROXAMOL [Concomitant]
  4. VOLTAROL [Concomitant]
  5. TRASIDREX [Concomitant]
  6. DELTACORTRIL [Concomitant]
  7. AMISULPRIDE [Concomitant]

REACTIONS (1)
  - DEAFNESS [None]
